FAERS Safety Report 10879300 (Version 3)
Quarter: 2015Q1

REPORT INFORMATION
  Report Type: Spontaneous
  Country: US (occurrence: None)
  Receive Date: 20150224
  Receipt Date: 20150323
  Transmission Date: 20150721
  Serious: Yes (Other)
  Sender: FDA-Public Use
  Company Number: 20150086L

PATIENT
  Age: 38 Year
  Sex: Female
  Weight: 66 kg

DRUGS (26)
  1. HUMALOG [Concomitant]
     Active Substance: INSULIN LISPRO
  2. BABY ASPIRIN [Concomitant]
     Active Substance: ASPIRIN
  3. CALCIFEROL [Concomitant]
     Active Substance: ERGOCALCIFEROL
  4. EPOGEN [Concomitant]
     Active Substance: ERYTHROPOIETIN
  5. COUMADIN (WARFARIN) [Concomitant]
  6. NORMAL SALINE [Suspect]
     Active Substance: SODIUM CHLORIDE
     Indication: PRODUCT USED FOR UNKNOWN INDICATION
  7. LOVENOX (ENOXAPARIN) [Concomitant]
  8. FRESENIUS 2008K DIALYSIS MACHINE [Suspect]
     Active Substance: DEVICE
     Indication: DIALYSIS
     Route: 010
     Dates: start: 20121230
  9. GRANUFLO [Suspect]
     Active Substance: ACETIC ACID\SODIUM ACETATE
     Indication: DIALYSIS
     Route: 010
     Dates: start: 20121230
  10. 180NRE OPTIFLUX [Suspect]
     Active Substance: DEVICE
     Indication: DIALYSIS
     Dosage: HEMODIALYSIS
     Route: 010
     Dates: start: 20121230
  11. SODIUM BICARBONATE (SODIUM BICARBONATE) [Concomitant]
  12. TRAZODONE [Concomitant]
     Active Substance: TRAZODONE HYDROCHLORIDE
  13. COREG [Concomitant]
     Active Substance: CARVEDILOL
  14. VENOFER [Suspect]
     Active Substance: IRON SUCROSE
     Indication: CHRONIC KIDNEY DISEASE
     Dosage: EVERY TREATMENT INTRAVENOUS BOLUS
     Route: 040
     Dates: start: 20121230
  15. NATURALYTE [Suspect]
     Active Substance: ACETIC ACID\SODIUM ACETATE
     Indication: DIALYSIS
     Route: 010
     Dates: start: 20121230
  16. FMC BLOOD LINES [Suspect]
     Active Substance: DEVICE
     Indication: DIALYSIS
     Route: 010
  17. NEPHROCAPS (MULTIVITAMIN) [Concomitant]
  18. ZEMPLAR [Concomitant]
     Active Substance: PARICALCITOL
  19. ZOLOFT [Concomitant]
     Active Substance: SERTRALINE HYDROCHLORIDE
  20. GABAPENTIN. [Concomitant]
     Active Substance: GABAPENTIN
  21. LISINOPRIL. [Concomitant]
     Active Substance: LISINOPRIL
  22. INSULIN LANTUS (INSULIN) [Concomitant]
  23. NEURONTIN [Concomitant]
     Active Substance: GABAPENTIN
  24. NORVASC (AMLODIPINE) [Concomitant]
  25. RENVELAR (SEVELAMER) [Concomitant]
  26. TUMS [Concomitant]
     Active Substance: CALCIUM CARBONATE

REACTIONS (14)
  - Facial spasm [None]
  - Seizure like phenomena [None]
  - Feeling abnormal [None]
  - Nausea [None]
  - Vomiting [None]
  - Blood pressure increased [None]
  - Malaise [None]
  - Tremor [None]
  - Unresponsive to stimuli [None]
  - Blood glucose increased [None]
  - Blood pressure decreased [None]
  - Off label use [None]
  - Refusal of treatment by patient [None]
  - Haemoglobin decreased [None]

NARRATIVE: CASE EVENT DATE: 20121230
